FAERS Safety Report 5029226-3 (Version None)
Quarter: 2006Q2

REPORT INFORMATION
  Report Type: 
  Country: None (occurrence: None)
  Receive Date: 20060613
  Receipt Date: 20060531
  Transmission Date: 20061013
  Serious: Yes (Other)
  Sender: FDA-Public Use
  Company Number: 2006070269

PATIENT
  Age: 61 Year
  Sex: Female

DRUGS (2)
  1. GEMFIBROZIL [Suspect]
     Indication: MALIGNANT MELANOMA
     Dosage: 600 MG (600 MG, 1 IN 1 D); ORAL
     Route: 048
  2. INTRON A [Suspect]
     Indication: MALIGNANT MELANOMA
     Dosage: 15 MU (3 IN 1 WK); SUBCUTANEOUS
     Route: 058

REACTIONS (4)
  - CONDITION AGGRAVATED [None]
  - DRUG INTERACTION [None]
  - HEPATITIS [None]
  - HYPERLIPIDAEMIA [None]
